FAERS Safety Report 17621297 (Version 1)
Quarter: 2020Q2

REPORT INFORMATION
  Report Type: Spontaneous
  Country: US (occurrence: US)
  Receive Date: 20200402
  Receipt Date: 20200402
  Transmission Date: 20200713
  Serious: Yes (Hospitalization)
  Sender: FDA-Public Use
  Company Number: None

PATIENT
  Age: 46 Year
  Sex: Female

DRUGS (1)
  1. IMATINIB. [Suspect]
     Active Substance: IMATINIB MESYLATE
     Indication: CHRONIC MYELOID LEUKAEMIA
     Route: 048
     Dates: start: 20200206

REACTIONS (5)
  - Dry skin [None]
  - Pruritus [None]
  - Drug level decreased [None]
  - Therapy interrupted [None]
  - Eye swelling [None]

NARRATIVE: CASE EVENT DATE: 20200315
